FAERS Safety Report 18895240 (Version 1)
Quarter: 2021Q1

REPORT INFORMATION
  Report Type: Spontaneous
  Country: US (occurrence: US)
  Receive Date: 20210215
  Receipt Date: 20210215
  Transmission Date: 20210420
  Serious: Yes (Other)
  Sender: FDA-Public Use
  Company Number: US-009507513-2102USA003318

PATIENT
  Age: 76 Year
  Sex: Male
  Weight: 101.15 kg

DRUGS (18)
  1. AMANTADINE. [Suspect]
     Active Substance: AMANTADINE HYDROCHLORIDE
     Dosage: 137 MILLIGRAM, 1X/DAY AT BEDTIME
     Route: 048
     Dates: start: 20210112
  2. GABAPENTIN. [Concomitant]
     Active Substance: GABAPENTIN
     Dosage: UNK
  3. LEVODOPA [Concomitant]
     Active Substance: LEVODOPA
     Dosage: UNK
  4. SOLIFENACIN SUCCINATE. [Concomitant]
     Active Substance: SOLIFENACIN SUCCINATE
     Dosage: UNK
  5. ASPIRIN. [Concomitant]
     Active Substance: ASPIRIN
     Dosage: UNK
  6. MELATONIN [Concomitant]
     Active Substance: MELATONIN
     Dosage: UNK
  7. SINEMET [Concomitant]
     Active Substance: CARBIDOPA\LEVODOPA
     Dosage: UNK
  8. OMEPRAZOLE. [Concomitant]
     Active Substance: OMEPRAZOLE
     Dosage: UNK
  9. TRIMETHOBENZAMIDE HYDROCHLORIDE. [Concomitant]
     Active Substance: TRIMETHOBENZAMIDE HYDROCHLORIDE
     Dosage: UNK
  10. SIMVASTATIN. [Concomitant]
     Active Substance: SIMVASTATIN
     Dosage: UNK
  11. AMANTADINE. [Suspect]
     Active Substance: AMANTADINE HYDROCHLORIDE
     Indication: DYSKINESIA
     Dosage: STRENGTH: 68.5 MILLIGRAM (MG), 274 MILLIGRAM, 1X/DAY AT BEDTIME
     Route: 048
     Dates: start: 20200804, end: 20210111
  12. METOLAZONE. [Suspect]
     Active Substance: METOLAZONE
     Dosage: UNK
     Dates: end: 20210113
  13. CLONAZEPAM. [Concomitant]
     Active Substance: CLONAZEPAM
     Dosage: UNK
  14. CYANOCOBALAMIN. [Concomitant]
     Active Substance: CYANOCOBALAMIN
     Dosage: UNK
  15. REMERON [Suspect]
     Active Substance: MIRTAZAPINE
     Dosage: UNK
     Dates: end: 202101
  16. AMANTADINE. [Suspect]
     Active Substance: AMANTADINE HYDROCHLORIDE
     Indication: DYSKINESIA
     Dosage: 137 MILLIGRAM, 1X/DAY, AT BEDTIME
     Route: 048
     Dates: start: 20200628, end: 20200803
  17. FUROSEMIDE. [Suspect]
     Active Substance: FUROSEMIDE
     Dosage: UNK
     Dates: end: 20210113
  18. RYTARY [Concomitant]
     Active Substance: CARBIDOPA\LEVODOPA
     Dosage: UNK

REACTIONS (7)
  - Weight increased [Not Recovered/Not Resolved]
  - Dizziness [Recovering/Resolving]
  - Dry mouth [Not Recovered/Not Resolved]
  - Somnolence [Not Recovered/Not Resolved]
  - Loss of consciousness [Recovering/Resolving]
  - Adverse event [Unknown]
  - Asthenia [Unknown]

NARRATIVE: CASE EVENT DATE: 2020
